FAERS Safety Report 19673251 (Version 1)
Quarter: 2021Q3

REPORT INFORMATION
  Report Type: Spontaneous
  Country: SE (occurrence: SE)
  Receive Date: 20210809
  Receipt Date: 20210809
  Transmission Date: 20211014
  Serious: No
  Sender: FDA-Public Use
  Company Number: SE-LUPIN PHARMACEUTICALS INC.-2021-13729

PATIENT
  Age: 25 Year
  Sex: Female

DRUGS (11)
  1. OXYCODONE [Suspect]
     Active Substance: OXYCODONE
     Indication: PAIN
     Dosage: 10 MILLIGRAM, QD
     Route: 048
  2. KETOBEMIDONE [Suspect]
     Active Substance: KETOBEMIDONE
     Dosage: 5 MILLIGRAM, 2?3 DAILY
     Route: 048
  3. KETOBEMIDONE [Suspect]
     Active Substance: KETOBEMIDONE
     Indication: PAIN
     Dosage: UNK
     Route: 042
  4. NORMOSANG [Suspect]
     Active Substance: HEME
     Dosage: 3 MILLIGRAM/KILOGRAM, GESTATION WEEK 25 (28 ML (700MG)
     Route: 065
  5. GLUCOSE [Suspect]
     Active Substance: DEXTROSE
     Indication: PORPHYRIA ACUTE
     Dosage: UNK, GESTATION WEEK 6 AND 7
     Route: 042
  6. KETOBEMIDONE [Suspect]
     Active Substance: KETOBEMIDONE
     Dosage: UNK UNK, QD, 20?30 MG DAILY
     Route: 048
  7. NORMOSANG [Suspect]
     Active Substance: HEME
     Dosage: 3 MILLIGRAM/KILOGRAM, GESTATION WEEK 32?39 (60 ML (1500 MG)
     Route: 065
  8. NORMOSANG [Suspect]
     Active Substance: HEME
     Dosage: 3 MILLIGRAM/KILOGRAM, GESTATION WEEK 30 (28 ML (700MG)
     Route: 065
  9. KETOBEMIDONE [Suspect]
     Active Substance: KETOBEMIDONE
     Dosage: UNK UNK, QD, 30?35 MG DAILY
     Route: 048
  10. NORMOSANG [Suspect]
     Active Substance: HEME
     Indication: PORPHYRIA ACUTE
     Dosage: 3 MILLIGRAM/KILOGRAM, GESTATION WEEK 3 (21 ML (525 MG)
     Route: 065
  11. NORMOSANG [Suspect]
     Active Substance: HEME
     Dosage: 3 MILLIGRAM/KILOGRAM, GESTATION WEEK 7 (28 ML (700MG)
     Route: 065

REACTIONS (1)
  - Exposure during pregnancy [Unknown]
